FAERS Safety Report 18157169 (Version 1)
Quarter: 2020Q3

REPORT INFORMATION
  Report Type: Spontaneous
  Country: CA (occurrence: CA)
  Receive Date: 20200817
  Receipt Date: 20200817
  Transmission Date: 20201103
  Serious: Yes (Hospitalization)
  Sender: FDA-Public Use
  Company Number: CA-ACCORD-195414

PATIENT
  Age: 69 Year
  Sex: Male

DRUGS (7)
  1. LITHIUM. [Concomitant]
     Active Substance: LITHIUM
  2. ROSUVASTATIN/ROSUVASTATIN CALCIUM [Concomitant]
     Active Substance: ROSUVASTATIN CALCIUM
  3. RAMIPRIL. [Suspect]
     Active Substance: RAMIPRIL
     Indication: BIPOLAR DISORDER
     Dosage: 1 EVERY 1 DAYS
  4. METOPROLOL. [Concomitant]
     Active Substance: METOPROLOL
  5. GLYCERYL TRINITRATE [Concomitant]
     Active Substance: NITROGLYCERIN
  6. ASA [Concomitant]
     Active Substance: ASPIRIN
  7. TICAGRELOR. [Concomitant]
     Active Substance: TICAGRELOR

REACTIONS (9)
  - Toxicity to various agents [Unknown]
  - Sleep deficit [Recovered/Resolved]
  - Drug interaction [Unknown]
  - Memory impairment [Recovered/Resolved]
  - Cognitive disorder [Recovered/Resolved]
  - Confusional state [Recovered/Resolved]
  - Sluggishness [Recovered/Resolved]
  - Mobility decreased [Recovered/Resolved]
  - Off label use [Unknown]
